FAERS Safety Report 9058466 (Version 3)
Quarter: 2014Q1

REPORT INFORMATION
  Report Type: Report from Study
  Country: DE (occurrence: DE)
  Receive Date: 20130211
  Receipt Date: 20140117
  Transmission Date: 20141002
  Serious: Yes (Hospitalization)
  Sender: FDA-Public Use
  Company Number: DE-VERTEX PHARMACEUTICALS INC.-2013-001839

PATIENT
  Age: 7 Decade
  Sex: Male
  Weight: 105 kg

DRUGS (5)
  1. VX-950 (TELAPREVIR) [Suspect]
     Indication: HEPATITIS C
     Dosage: 2225 MG, QD
     Route: 048
     Dates: start: 20120823, end: 20121115
  2. PEGASYS [Suspect]
     Indication: HEPATITIS C
     Dosage: DOSAGE FORM: UNSPECIFIED
     Route: 058
     Dates: start: 20120823
  3. PEGASYS [Suspect]
     Dosage: DOSAGE FORM: UNSPECIFIED
     Route: 058
     Dates: start: 20130110
  4. COPEGUS [Suspect]
     Indication: HEPATITIS C
     Dosage: 800 MG, UNK
     Route: 048
     Dates: start: 20120823
  5. ACC AKUT [Concomitant]
     Indication: COUGH
     Dosage: DOSAGE FORM: UNSPECIFIED
     Route: 048
     Dates: start: 20120918

REACTIONS (6)
  - Portal hypertension [Unknown]
  - Hypersplenism [Unknown]
  - Chest pain [Unknown]
  - Leukopenia [Unknown]
  - Upper respiratory tract infection [Recovered/Resolved]
  - Thrombocytopenia [Unknown]
